FAERS Safety Report 10647870 (Version 1)
Quarter: 2014Q4

REPORT INFORMATION
  Report Type: Spontaneous
  Country: GB (occurrence: GB)
  Receive Date: 20141212
  Receipt Date: 20141212
  Transmission Date: 20150529
  Serious: Yes (Death)
  Sender: FDA-Public Use
  Company Number: GB-CIPLA LTD.-2014GB02346

PATIENT

DRUGS (7)
  1. THIOTEPA. [Suspect]
     Active Substance: THIOTEPA
     Indication: GERM CELL CANCER
     Dosage: 125MG/M2/DAY CONTINUOUS INFUSION ON D1 AND D4
  2. TOPOTECAN [Suspect]
     Active Substance: TOPOTECAN\TOPOTECAN HYDROCHLORIDE
     Indication: GERM CELL CANCER
     Dosage: 10 MG/M2 ON D1, D2 AND D3
  3. CARBOPLATIN. [Suspect]
     Active Substance: CARBOPLATIN
     Indication: GERM CELL CANCER
     Dosage: AUC7 FOLLOWED 12 HOURS LATER BY TOPOTECAN DOSE
  4. PACLITAXEL. [Suspect]
     Active Substance: PACLITAXEL
     Indication: GERM CELL CANCER
     Dosage: 80 MG/M2 ADMINISTERED ON D1, D8 AND D15, 3 WEEKLY REGIMEN
  5. IRINOTECAN [Suspect]
     Active Substance: IRINOTECAN
     Indication: GERM CELL CANCER
     Dosage: 200MG/M2, 3 WEEKLY REGIMEN
  6. OXALIPLATIN. [Suspect]
     Active Substance: OXALIPLATIN
     Indication: GERM CELL CANCER
     Dosage: 100MG/M2 GIVEN ON D1, 3 WEEKLY REGIMEN
  7. FILGRASTIM [Concomitant]
     Active Substance: FILGRASTIM
     Dosage: 300MCG/DAY ON ALTERNATE DAYS FROM DAY 2 TO DAY 14.

REACTIONS (1)
  - Staphylococcal sepsis [Fatal]
